FAERS Safety Report 5458132-5 (Version None)
Quarter: 2007Q3

REPORT INFORMATION
  Report Type: 
  Country: None (occurrence: None)
  Receive Date: 20070917
  Receipt Date: 20070828
  Transmission Date: 20080115
  Serious: Yes (Hospitalization)
  Sender: FDA-Public Use
  Company Number: 6037378

PATIENT
  Age: 77 Year
  Sex: Male

DRUGS (9)
  1. CARDENSIEL 1.25 MG(1,25 MG, TABLET) (BISOPROIOL FUMARATE) [Suspect]
     Indication: DRUG USE FOR UNKNOWN INDICATION
     Dosage: 3,7500 MG (1,25 MG,3 IN 1 D), ORAL
     Route: 048
     Dates: end: 20070721
  2. ARICEPT [Suspect]
     Indication: DRUG USE FOR UNKNOWN INDICATION
     Dosage: 5,00 MG (5 MG,1 IN 1 D), ORAL
     Route: 048
     Dates: end: 20070729
  3. KARDEGIC (ACELTYLSALICYLATE) [Concomitant]
  4. RAMIPRIL [Concomitant]
  5. PRAVASTATIN [Concomitant]
  6. NEXIUM [Concomitant]
  7. EUROBIOL (PANCREATIN) [Concomitant]
  8. PROBIOLOG [Concomitant]
  9. NASONEX [Concomitant]

REACTIONS (2)
  - BRADYCARDIA [None]
  - FALL [None]
